FAERS Safety Report 18393838 (Version 2)
Quarter: 2024Q2

REPORT INFORMATION
  Report Type: Spontaneous
  Country: NZ (occurrence: NZ)
  Receive Date: 20201016
  Receipt Date: 20240423
  Transmission Date: 20240715
  Serious: Yes (Hospitalization)
  Sender: FDA-Public Use
  Company Number: NZ-ENDO PHARMACEUTICALS INC-2020-006723

PATIENT
  Age: 15 Year
  Sex: Male
  Weight: 49.2 kg

DRUGS (30)
  1. ITRACONAZOLE [Suspect]
     Active Substance: ITRACONAZOLE
     Indication: Bronchopulmonary aspergillosis allergic
     Dosage: 100 MG, DAILY (ABPA ADMISSION)
     Route: 048
  2. ITRACONAZOLE [Suspect]
     Active Substance: ITRACONAZOLE
     Dosage: 100 MG, DAILY (HHS PRESENTATION)
     Route: 048
  3. ITRACONAZOLE [Suspect]
     Active Substance: ITRACONAZOLE
     Dosage: 100 MG, DAILY (TERTIARY HOSPITAL TRANSFER)
     Route: 048
  4. PREDNISONE [Suspect]
     Active Substance: PREDNISONE
     Indication: Bronchopulmonary aspergillosis allergic
     Dosage: 40 MG, DAILY
     Route: 048
  5. PREDNISONE [Suspect]
     Active Substance: PREDNISONE
     Dosage: 20 MG, DAILY (HHS PRESENTATION)
     Route: 048
  6. PREDNISONE [Suspect]
     Active Substance: PREDNISONE
     Dosage: REDUCED  TO 10 MG, DAILY
     Route: 048
  7. PREDNISONE [Suspect]
     Active Substance: PREDNISONE
     Dosage: 5 MG, DAILY (TERTIARY HOSPITAL TRANSFER)
     Route: 048
  8. FLUTICASONE PROPIONATE [Suspect]
     Active Substance: FLUTICASONE PROPIONATE
     Indication: Product used for unknown indication
     Dosage: 125MCG, 2 PUFFS INHALATIONAL (ABPA ADMISSION) TWICE DAILY
     Route: 050
  9. FLUTICASONE PROPIONATE [Suspect]
     Active Substance: FLUTICASONE PROPIONATE
     Dosage: 125MCG, 2 PUFFS INHALATIONAL (HHS PRESENTATION) TWICE DAILY
     Route: 050
  10. SERETIDE [Suspect]
     Active Substance: FLUTICASONE PROPIONATE\SALMETEROL XINAFOATE
     Indication: Product used for unknown indication
     Dosage: 2 PUFFS INHALATIONAL TWICE DAILY (125MCG/25MCG) (TERTIARY HOSPITAL TRANSFER)
     Route: 050
  11. SERETIDE [Suspect]
     Active Substance: FLUTICASONE PROPIONATE\SALMETEROL XINAFOATE
     Dosage: 2 PUFFS INHALATIONAL TWICE DAILY (125MCG/25MCG) FOLLOW UP
  12. FLUTICASONE PROPIONATE [Suspect]
     Active Substance: FLUTICASONE PROPIONATE
     Indication: Product used for unknown indication
     Dosage: 1 SPRAY EACH NOSTRIL, BID (ABPA ADMISSION)
     Route: 050
  13. FLUTICASONE PROPIONATE [Suspect]
     Active Substance: FLUTICASONE PROPIONATE
     Dosage: 1 SPRAY EACH NOSTRIL, BID (HHS PRESENTATION)
     Route: 050
  14. FLUTICASONE PROPIONATE [Suspect]
     Active Substance: FLUTICASONE PROPIONATE
     Dosage: 1 SPRAY EACH NOSTRIL, BID (TERTIARY HOSPITAL TRANSFER)
     Route: 050
  15. FLUTICASONE PROPIONATE [Suspect]
     Active Substance: FLUTICASONE PROPIONATE
     Dosage: 1 SPRAY EACH NOSTRIL, BID (FOLLOW UP)
     Route: 050
  16. ISOPHANE INSULIN [Concomitant]
     Active Substance: INSULIN NOS
     Indication: Cystic fibrosis related diabetes
     Dosage: UNK UNK, DAILY
  17. INSULIN NOS [Concomitant]
     Active Substance: INSULIN NOS
     Indication: Cystic fibrosis related diabetes
  18. TOBRAMYCIN [Concomitant]
     Active Substance: TOBRAMYCIN\TOBRAMYCIN SULFATE
     Indication: Bronchopulmonary aspergillosis allergic
  19. CEFTAZIDIME [Concomitant]
     Active Substance: CEFTAZIDIME
     Indication: Bronchopulmonary aspergillosis allergic
  20. TESTOSTERONE [Concomitant]
     Active Substance: TESTOSTERONE
     Indication: Product used for unknown indication
  21. VITABDECK [Concomitant]
     Indication: Product used for unknown indication
  22. VITAMIN K [Concomitant]
     Active Substance: PHYTONADIONE
     Indication: Product used for unknown indication
  23. RETINOL [Concomitant]
     Active Substance: RETINOL
     Indication: Product used for unknown indication
  24. SODIUM CHLORIDE [Concomitant]
     Active Substance: SODIUM CHLORIDE
     Indication: Product used for unknown indication
  25. CREON [Concomitant]
     Active Substance: PANCRELIPASE AMYLASE\PANCRELIPASE LIPASE\PANCRELIPASE PROTEASE
     Indication: Product used for unknown indication
  26. CETIRIZINE [Concomitant]
     Active Substance: CETIRIZINE HYDROCHLORIDE
     Indication: Product used for unknown indication
  27. ZINC [Concomitant]
     Active Substance: PYRITHIONE ZINC\ZINC\ZINC CHLORIDE
     Indication: Product used for unknown indication
  28. FERROUS SULFATE [Concomitant]
     Active Substance: FERROUS SULFATE
     Indication: Product used for unknown indication
     Dosage: UNK
  29. ALBUTEROL [Concomitant]
     Active Substance: ALBUTEROL
     Indication: Product used for unknown indication
  30. POLYETHYLENE GLYCOLS [Concomitant]
     Active Substance: POLYETHYLENE GLYCOLS
     Indication: Product used for unknown indication

REACTIONS (2)
  - Hyperglycaemic hyperosmolar nonketotic syndrome [Recovering/Resolving]
  - Drug interaction [Recovering/Resolving]
